FAERS Safety Report 6139021-X (Version None)
Quarter: 2009Q1

REPORT INFORMATION
  Report Type: 
  Country: None (occurrence: None)
  Receive Date: 20090327
  Receipt Date: 20090302
  Transmission Date: 20090719
  Serious: Yes (Other)
  Sender: FDA-Public Use
  Company Number: 2009S1003535

PATIENT
  Age: 36 Year
  Sex: Male

DRUGS (3)
  1. CIMETIDINE [Suspect]
     Indication: GASTRITIS
     Dosage: 400 MG; TWICE A DAY; ORAL
     Route: 048
  2. NEFAZODONE HCL [Suspect]
     Indication: ANXIETY
     Dates: start: 19990401
  3. NEFAZODONE HCL [Suspect]
     Indication: DEPRESSION
     Dates: start: 19990401

REACTIONS (2)
  - DRUG INTERACTION [None]
  - DYSKINESIA [None]
